FAERS Safety Report 12661408 (Version 2)
Quarter: 2016Q3

REPORT INFORMATION
  Report Type: Spontaneous
  Country: US (occurrence: US)
  Receive Date: 20160817
  Receipt Date: 20160901
  Transmission Date: 20161109
  Serious: No
  Sender: FDA-Public Use
  Company Number: US-RELYPSA-RLY2016000953

PATIENT
  Sex: Male

DRUGS (13)
  1. MULTAQ [Concomitant]
     Active Substance: DRONEDARONE
  2. FUROSEMIDE. [Concomitant]
     Active Substance: FUROSEMIDE
  3. LASIX [Concomitant]
     Active Substance: FUROSEMIDE
  4. HERBAL EXTRACT NOS [Concomitant]
     Active Substance: HERBALS
  5. METOPROLOL TARTRATE. [Concomitant]
     Active Substance: METOPROLOL TARTRATE
  6. FLOMAX [Concomitant]
     Active Substance: TAMSULOSIN HYDROCHLORIDE
  7. XARELTO [Concomitant]
     Active Substance: RIVAROXABAN
  8. TRADJENTA [Concomitant]
     Active Substance: LINAGLIPTIN
  9. FISH OIL W/VITAMIN D NOS [Concomitant]
  10. ULORIC [Concomitant]
     Active Substance: FEBUXOSTAT
  11. VELTASSA [Suspect]
     Active Substance: PATIROMER
     Indication: HYPERKALAEMIA
     Dosage: 8.4 G, QD
     Route: 048
     Dates: start: 20160524
  12. ATENOLOL. [Concomitant]
     Active Substance: ATENOLOL
  13. VICODIN [Concomitant]
     Active Substance: ACETAMINOPHEN\HYDROCODONE BITARTRATE

REACTIONS (1)
  - Blood potassium increased [Recovered/Resolved]

NARRATIVE: CASE EVENT DATE: 2016
